FAERS Safety Report 18437774 (Version 36)
Quarter: 2025Q2

REPORT INFORMATION
  Report Type: Report from Study
  Country: US (occurrence: US)
  Receive Date: 20201028
  Receipt Date: 20250422
  Transmission Date: 20250717
  Serious: Yes (Hospitalization, Other)
  Sender: TAKEDA
  Company Number: US-SHIRE-US201930487AA

PATIENT
  Age: 21 Year
  Sex: Female

DRUGS (22)
  1. HUMAN C1-ESTERASE INHIBITOR [Suspect]
     Active Substance: HUMAN C1-ESTERASE INHIBITOR
     Indication: Immune system disorder
     Dosage: 1500 INTERNATIONAL UNIT, 3/WEEK
     Dates: start: 20160810
  2. HUMAN C1-ESTERASE INHIBITOR [Suspect]
     Active Substance: HUMAN C1-ESTERASE INHIBITOR
     Dosage: 1500 INTERNATIONAL UNIT, 3/WEEK
     Dates: start: 20160822
  3. HUMAN C1-ESTERASE INHIBITOR [Suspect]
     Active Substance: HUMAN C1-ESTERASE INHIBITOR
     Dosage: 1500 INTERNATIONAL UNIT, 3/WEEK
     Dates: start: 20160825
  4. HUMAN C1-ESTERASE INHIBITOR [Suspect]
     Active Substance: HUMAN C1-ESTERASE INHIBITOR
     Dosage: 1500 INTERNATIONAL UNIT, 3/WEEK
     Dates: start: 20160826
  5. HUMAN C1-ESTERASE INHIBITOR [Suspect]
     Active Substance: HUMAN C1-ESTERASE INHIBITOR
     Dosage: 1500 INTERNATIONAL UNIT, 3/WEEK
     Dates: start: 201706
  6. HUMAN C1-ESTERASE INHIBITOR [Suspect]
     Active Substance: HUMAN C1-ESTERASE INHIBITOR
     Dosage: 1500 INTERNATIONAL UNIT, 3/WEEK
     Dates: start: 201708
  7. HUMAN C1-ESTERASE INHIBITOR [Suspect]
     Active Substance: HUMAN C1-ESTERASE INHIBITOR
     Dosage: 1500 INTERNATIONAL UNIT, 2/WEEK
     Dates: start: 201901
  8. HUMAN C1-ESTERASE INHIBITOR [Suspect]
     Active Substance: HUMAN C1-ESTERASE INHIBITOR
     Dosage: 1500 INTERNATIONAL UNIT, 3/WEEK
     Dates: start: 20210910
  9. HUMAN C1-ESTERASE INHIBITOR [Suspect]
     Active Substance: HUMAN C1-ESTERASE INHIBITOR
     Dosage: 1500 INTERNATIONAL UNIT, Q72H
  10. HUMAN C1-ESTERASE INHIBITOR [Suspect]
     Active Substance: HUMAN C1-ESTERASE INHIBITOR
     Dosage: 1500 INTERNATIONAL UNIT, 2/WEEK
  11. FIRAZYR [Suspect]
     Active Substance: ICATIBANT ACETATE
     Indication: Hereditary angioedema
  12. FIRAZYR [Suspect]
     Active Substance: ICATIBANT ACETATE
     Indication: Immune system disorder
  13. FIRAZYR [Suspect]
     Active Substance: ICATIBANT ACETATE
  14. FIRAZYR [Suspect]
     Active Substance: ICATIBANT ACETATE
  15. FIRAZYR [Suspect]
     Active Substance: ICATIBANT ACETATE
  16. FIRAZYR [Suspect]
     Active Substance: ICATIBANT ACETATE
  17. FIRAZYR [Suspect]
     Active Substance: ICATIBANT ACETATE
  18. GABAPENTIN [Concomitant]
     Active Substance: GABAPENTIN
     Indication: Neuralgia
  19. EPIPEN [Concomitant]
     Active Substance: EPINEPHRINE
     Indication: Hereditary angioedema
  20. DIPHENHYDRAMINE [Concomitant]
     Active Substance: DIPHENHYDRAMINE
  21. HEPARIN [Concomitant]
     Active Substance: HEPARIN SODIUM
  22. ICATIBANT ACETATE [Concomitant]
     Active Substance: ICATIBANT ACETATE

REACTIONS (14)
  - Respiratory tract infection [Unknown]
  - Endometriosis [Unknown]
  - Pain [Unknown]
  - Hereditary angioedema [Recovered/Resolved]
  - Neuralgia [Unknown]
  - Post procedural complication [Unknown]
  - Device malfunction [Unknown]
  - Product distribution issue [Unknown]
  - Inappropriate schedule of product administration [Unknown]
  - Incorrect route of product administration [Unknown]
  - Extra dose administered [Unknown]
  - Cough [Unknown]
  - Migraine [Unknown]
  - Sinusitis [Unknown]

NARRATIVE: CASE EVENT DATE: 20210416
